FAERS Safety Report 12166799 (Version 2)
Quarter: 2016Q3

REPORT INFORMATION
  Report Type: Spontaneous
  Country: US (occurrence: US)
  Receive Date: 20160310
  Receipt Date: 20160731
  Transmission Date: 20161109
  Serious: Yes (Hospitalization)
  Sender: FDA-Public Use
  Company Number: US-BEH-2016059529

PATIENT
  Age: 48 Year
  Sex: Female
  Weight: 72.58 kg

DRUGS (29)
  1. MEDROL [Concomitant]
     Active Substance: METHYLPREDNISOLONE
  2. LMX [Concomitant]
     Active Substance: LIDOCAINE
  3. PROAIR HFA [Concomitant]
     Active Substance: ALBUTEROL SULFATE
  4. OXYGEN. [Concomitant]
     Active Substance: OXYGEN
  5. KETOROLAC [Concomitant]
     Active Substance: KETOROLAC\KETOROLAC TROMETHAMINE
  6. ZEMAIRA [Suspect]
     Active Substance: .ALPHA.1-PROTEINASE INHIBITOR HUMAN
     Indication: ALPHA-1 ANTI-TRYPSIN DEFICIENCY
     Dosage: EXP: 27-APR-????
     Route: 042
  7. XANAX [Concomitant]
     Active Substance: ALPRAZOLAM
  8. VITAMIN D3 [Concomitant]
     Active Substance: CHOLECALCIFEROL
  9. PERFOROMIST [Concomitant]
     Active Substance: FORMOTEROL FUMARATE DIHYDRATE
  10. AUGMENTIN [Concomitant]
     Active Substance: AMOXICILLIN\CLAVULANATE POTASSIUM
  11. CYMBALTA [Concomitant]
     Active Substance: DULOXETINE HYDROCHLORIDE
  12. MOBIC [Concomitant]
     Active Substance: MELOXICAM
  13. PULMICORT TURBUHALER [Concomitant]
     Active Substance: BUDESONIDE
  14. DIPHENHYDRAMINE. [Concomitant]
     Active Substance: DIPHENHYDRAMINE
  15. PREDNISONE. [Concomitant]
     Active Substance: PREDNISONE
  16. HCTZ [Concomitant]
     Active Substance: HYDROCHLOROTHIAZIDE
  17. LISINOPRIL. [Concomitant]
     Active Substance: LISINOPRIL
  18. EPIPEN [Concomitant]
     Active Substance: EPINEPHRINE
  19. PRILOSEC [Concomitant]
     Active Substance: OMEPRAZOLE MAGNESIUM
  20. ARMOUR THYROID [Concomitant]
     Active Substance: THYROID, PORCINE
  21. NORMAL SALINE [Concomitant]
     Active Substance: SODIUM CHLORIDE
  22. BUDESONIDE. [Concomitant]
     Active Substance: BUDESONIDE
  23. ALBUTEROL. [Concomitant]
     Active Substance: ALBUTEROL
  24. SODIUM CHLORIDE. [Concomitant]
     Active Substance: SODIUM CHLORIDE
  25. SPIRIVA [Concomitant]
     Active Substance: TIOTROPIUM BROMIDE MONOHYDRATE
  26. SUMATRIPTAN SUCCINATE. [Concomitant]
     Active Substance: SUMATRIPTAN SUCCINATE
  27. IBUPROFEN. [Concomitant]
     Active Substance: IBUPROFEN
  28. FOSAMAX [Concomitant]
     Active Substance: ALENDRONATE SODIUM
  29. AMITRIPTYLINE [Concomitant]
     Active Substance: AMITRIPTYLINE

REACTIONS (1)
  - Thyroid disorder [Recovering/Resolving]

NARRATIVE: CASE EVENT DATE: 20160201
